FAERS Safety Report 18177926 (Version 2)
Quarter: 2020Q3

REPORT INFORMATION
  Report Type: Spontaneous
  Country: DE (occurrence: DE)
  Receive Date: 20200821
  Receipt Date: 20200925
  Transmission Date: 20201103
  Serious: Yes (Hospitalization, Other)
  Sender: FDA-Public Use
  Company Number: DE-SA-2020SA218267

PATIENT

DRUGS (10)
  1. CANDESARTAN. [Concomitant]
     Active Substance: CANDESARTAN
     Dosage: UNK UNK, QD
  2. FAMPRIDINE [Concomitant]
     Active Substance: DALFAMPRIDINE
  3. AUBAGIO [Suspect]
     Active Substance: TERIFLUNOMIDE
     Dosage: 14 MG, QD
     Route: 048
     Dates: start: 201805
  4. HCT [Concomitant]
     Active Substance: HYDROCHLOROTHIAZIDE
     Dosage: UNK UNK, QD
  5. TAMSULOSIN [Concomitant]
     Active Substance: TAMSULOSIN
  6. PANTOPRAZOLE [Concomitant]
     Active Substance: PANTOPRAZOLE
     Dosage: UNK UNK, BID
     Dates: start: 20200807
  7. AUBAGIO [Suspect]
     Active Substance: TERIFLUNOMIDE
     Indication: MULTIPLE SCLEROSIS
     Dosage: UNK
     Dates: start: 201804
  8. ASPIRIN. [Concomitant]
     Active Substance: ASPIRIN
     Dosage: UNK UNK, QD
  9. METOPROLOL. [Concomitant]
     Active Substance: METOPROLOL
     Dosage: UNK UNK, QD
  10. METOCLOPRAMIDE. [Concomitant]
     Active Substance: METOCLOPRAMIDE
     Dosage: UNK
     Dates: start: 20200807

REACTIONS (7)
  - Hypertension [Unknown]
  - Atrial fibrillation [Unknown]
  - Oedema peripheral [Unknown]
  - Coeliac artery stenosis [Unknown]
  - Abdominal pain [Recovering/Resolving]
  - Rectal polyp [Unknown]
  - Coeliac artery compression syndrome [Unknown]

NARRATIVE: CASE EVENT DATE: 20200812
